FAERS Safety Report 12161576 (Version 1)
Quarter: 2016Q1

REPORT INFORMATION
  Report Type: Spontaneous
  Country: ZA (occurrence: ZA)
  Receive Date: 20160309
  Receipt Date: 20160309
  Transmission Date: 20160526
  Serious: Yes (Death)
  Sender: FDA-Public Use
  Company Number: ZA-ROCHE-1723123

PATIENT
  Age: 59 Year
  Sex: Female

DRUGS (2)
  1. TAXOTERE [Concomitant]
     Active Substance: DOCETAXEL
     Indication: HER-2 POSITIVE BREAST CANCER
  2. HERCEPTIN [Suspect]
     Active Substance: TRASTUZUMAB
     Route: 065

REACTIONS (1)
  - Lower respiratory tract infection [Fatal]
